FAERS Safety Report 5575111-8 (Version None)
Quarter: 2007Q4

REPORT INFORMATION
  Report Type: 
  Country: None (occurrence: None)
  Receive Date: 20071227
  Receipt Date: 20071218
  Transmission Date: 20080405
  Serious: Yes (Other)
  Sender: FDA-Public Use
  Company Number: US-RANBAXY-2007US-11363

PATIENT

DRUGS (3)
  1. ISOTRETINOIN [Suspect]
     Indication: DRUG USE FOR UNKNOWN INDICATION
     Dosage: 40 MG, QD
     Route: 048
     Dates: start: 20070221, end: 20070323
  2. ISOTRETINOIN [Suspect]
     Dosage: 40 MG, QD
     Route: 048
     Dates: start: 20070502, end: 20070818
  3. ISOTRETINOIN [Suspect]
     Dosage: 40 MG, 2 IN 1 DAY
     Route: 048
     Dates: start: 20070827, end: 20070926

REACTIONS (1)
  - PREGNANCY [None]
